FAERS Safety Report 23598381 (Version 1)
Quarter: 2024Q1

REPORT INFORMATION
  Report Type: Spontaneous
  Country: US (occurrence: US)
  Receive Date: 20240305
  Receipt Date: 20240305
  Transmission Date: 20240409
  Serious: No
  Sender: FDA-Public Use
  Company Number: US-NOVITIUMPHARMA-2024USNVP00223

PATIENT
  Age: 53 Year
  Sex: Female

DRUGS (2)
  1. ESTRADIOL [Suspect]
     Active Substance: ESTRADIOL
     Indication: Menopause
     Route: 048
     Dates: start: 20240122
  2. PROGESTERONE [Concomitant]
     Active Substance: PROGESTERONE
     Indication: Product used for unknown indication

REACTIONS (4)
  - Irritability [Not Recovered/Not Resolved]
  - Hot flush [Not Recovered/Not Resolved]
  - Drug ineffective [Not Recovered/Not Resolved]
  - Condition aggravated [Not Recovered/Not Resolved]
